FAERS Safety Report 12484897 (Version 2)
Quarter: 2016Q4

REPORT INFORMATION
  Report Type: Spontaneous
  Country: GB (occurrence: GB)
  Receive Date: 20160621
  Receipt Date: 20161017
  Transmission Date: 20170207
  Serious: Yes (Disabling, Other)
  Sender: FDA-Public Use
  Company Number: ALCN2016GB004083

PATIENT
  Age: 65 Year
  Sex: Female
  Weight: 68 kg

DRUGS (2)
  1. MAXIDEX [Suspect]
     Active Substance: DEXAMETHASONE
     Indication: IRITIS
     Dosage: UNK
     Route: 047
     Dates: start: 20141016
  2. MAXIDEX [Suspect]
     Active Substance: DEXAMETHASONE
     Indication: IRIDOCYCLITIS
     Dosage: UNK
     Route: 047
     Dates: start: 20141016

REACTIONS (3)
  - Visual acuity reduced [Unknown]
  - Cataract [Unknown]
  - Medication monitoring error [Unknown]

NARRATIVE: CASE EVENT DATE: 201503
